FAERS Safety Report 11387847 (Version 4)
Quarter: 2016Q2

REPORT INFORMATION
  Report Type: Report from Study
  Country: US (occurrence: US)
  Receive Date: 20150817
  Receipt Date: 20160425
  Transmission Date: 20160815
  Serious: Yes (Other)
  Sender: FDA-Public Use
  Company Number: PHEH2014US021399

PATIENT
  Age: 7 Year
  Sex: Male
  Weight: 27.6 kg

DRUGS (4)
  1. AFINITOR [Suspect]
     Active Substance: EVEROLIMUS
     Indication: ASTROCYTOMA, LOW GRADE
     Dosage: UNK MG, QD
     Route: 048
     Dates: start: 20130924, end: 20141001
  2. AFINITOR [Suspect]
     Active Substance: EVEROLIMUS
     Indication: BRAIN NEOPLASM BENIGN
     Dosage: 4 MG, QD
     Route: 048
     Dates: start: 20150117
  3. KEPPRA [Suspect]
     Active Substance: LEVETIRACETAM
     Indication: SEIZURE
     Dosage: 4.5 ML IN AM AND 3 ML IN PM, QD
     Route: 048
     Dates: start: 20150925
  4. AFINITOR [Suspect]
     Active Substance: EVEROLIMUS
     Dosage: 5 MG, QD
     Route: 048
     Dates: start: 201501

REACTIONS (7)
  - Seizure [Recovering/Resolving]
  - Drug ineffective [Unknown]
  - Synovial cyst [Unknown]
  - Pyrexia [Recovered/Resolved]
  - Electroencephalogram abnormal [Unknown]
  - Mouth ulceration [Recovered/Resolved]
  - Upper extremity mass [Unknown]

NARRATIVE: CASE EVENT DATE: 20141001
